FAERS Safety Report 14636484 (Version 5)
Quarter: 2019Q2

REPORT INFORMATION
  Report Type: Spontaneous
  Country: FR (occurrence: FR)
  Receive Date: 20180314
  Receipt Date: 20190501
  Transmission Date: 20190711
  Serious: Yes (Hospitalization, Other)
  Sender: FDA-Public Use
  Company Number: FR-CELGENEUS-FRA-20180302077

PATIENT
  Sex: Female
  Weight: 50 kg

DRUGS (3)
  1. NOXAFIL [Concomitant]
     Active Substance: POSACONAZOLE
     Indication: PRODUCT USED FOR UNKNOWN INDICATION
     Route: 065
  2. AG-221 [Suspect]
     Active Substance: ENASIDENIB
     Dosage: DOSE REDUCED
     Route: 048
  3. AG-221 [Suspect]
     Active Substance: ENASIDENIB
     Indication: PRODUCT USED FOR UNKNOWN INDICATION
     Route: 048
     Dates: start: 20171120

REACTIONS (2)
  - Hyperbilirubinaemia [Unknown]
  - Jaundice cholestatic [Recovered/Resolved]
